FAERS Safety Report 16732784 (Version 1)
Quarter: 2019Q3

REPORT INFORMATION
  Report Type: Spontaneous
  Country: US (occurrence: US)
  Receive Date: 20190823
  Receipt Date: 20190823
  Transmission Date: 20191005
  Serious: Yes (Other)
  Sender: FDA-Public Use
  Company Number: US-TEVA-2019-US-1096294

PATIENT
  Sex: Female

DRUGS (1)
  1. ANASTROZOLE. [Suspect]
     Active Substance: ANASTROZOLE
     Indication: BREAST CANCER
     Route: 065
     Dates: start: 2017

REACTIONS (12)
  - Blood cholesterol increased [Unknown]
  - Hyperhidrosis [Unknown]
  - Retinal tear [Unknown]
  - Eye disorder [Unknown]
  - Sleep disorder [Unknown]
  - Weight increased [Unknown]
  - Arthralgia [Unknown]
  - Blood pressure increased [Unknown]
  - Alopecia [Unknown]
  - Vertigo [Unknown]
  - Withdrawal syndrome [Unknown]
  - Product dose omission [Unknown]
